FAERS Safety Report 5481747-5 (Version None)
Quarter: 2007Q3

REPORT INFORMATION
  Report Type: 
  Country: None (occurrence: None)
  Receive Date: 20070917
  Receipt Date: 20061204
  Transmission Date: 20080115
  Serious: Yes (Hospitalization)
  Sender: FDA-Public Use
  Company Number: S06-USA-05089-01

PATIENT
  Age: 78 Year
  Sex: Female

DRUGS (5)
  1. CELEXA [Suspect]
     Indication: DEPRESSION
     Dosage: 20 MG QD PO
     Route: 048
  2. TRAMADOL HCL [Suspect]
     Indication: ARTHRALGIA
     Dates: start: 20060101, end: 20060901
  3. CLONAZEPAM [Concomitant]
  4. CELEBREX [Concomitant]
  5. AMOXICILLIN [Concomitant]

REACTIONS (7)
  - ANXIETY [None]
  - BLOOD PRESSURE INCREASED [None]
  - CONFUSIONAL STATE [None]
  - DRUG INTERACTION [None]
  - HALLUCINATION, AUDITORY [None]
  - HYPERHIDROSIS [None]
  - MUSCLE SPASMS [None]
